FAERS Safety Report 18546783 (Version 2)
Quarter: 2020Q4

REPORT INFORMATION
  Report Type: Report from Study
  Country: AE (occurrence: AE)
  Receive Date: 20201125
  Receipt Date: 20201203
  Transmission Date: 20210114
  Serious: Yes (Life-Threatening, Hospitalization, Other)
  Sender: FDA-Public Use
  Company Number: AE-GILEAD-2020-0505807

PATIENT
  Age: 46 Year
  Sex: Male
  Weight: 67 kg

DRUGS (10)
  1. REMDESIVIR. [Suspect]
     Active Substance: REMDESIVIR
     Dosage: 100 MG, QD
     Route: 042
     Dates: start: 20200715, end: 20200724
  2. MAGNESIUM [Concomitant]
     Active Substance: MAGNESIUM
  3. INSULIN [Concomitant]
     Active Substance: INSULIN NOS
  4. TIGECYCLINE. [Concomitant]
     Active Substance: TIGECYCLINE
     Indication: SOFT TISSUE INFECTION
     Dosage: 100
     Route: 042
     Dates: start: 20200714, end: 20200721
  5. LEVOFLOXACIN. [Concomitant]
     Active Substance: LEVOFLOXACIN
     Indication: PNEUMONIA
     Dosage: 750
     Route: 042
     Dates: start: 20200714, end: 20200721
  6. ANIDULAFUNGIN [Concomitant]
     Active Substance: ANIDULAFUNGIN
     Indication: CANDIDA INFECTION
     Dosage: 100
     Route: 042
     Dates: start: 20200716, end: 20200724
  7. INSULIN GLARGINE [Concomitant]
     Active Substance: INSULIN GLARGINE
  8. REMDESIVIR. [Suspect]
     Active Substance: REMDESIVIR
     Indication: COVID-19
     Dosage: 200 MG, ONCE
     Route: 042
     Dates: start: 20200714, end: 20200714
  9. ENOXAPARIN [Concomitant]
     Active Substance: ENOXAPARIN
     Indication: DEEP VEIN THROMBOSIS
     Dosage: 60 MG
     Route: 058
     Dates: start: 20200714, end: 20200828
  10. POTASSIUM [Concomitant]
     Active Substance: POTASSIUM

REACTIONS (6)
  - Hypotension [Recovered/Resolved]
  - Deep vein thrombosis [Recovered/Resolved]
  - Hypoglycaemia [Recovered/Resolved]
  - General physical health deterioration [Recovered/Resolved]
  - Septic shock [Recovered/Resolved]
  - Pneumonia [Recovered/Resolved]

NARRATIVE: CASE EVENT DATE: 20200716
